FAERS Safety Report 16232820 (Version 1)
Quarter: 2019Q2

REPORT INFORMATION
  Report Type: Spontaneous
  Country: US (occurrence: US)
  Receive Date: 20190424
  Receipt Date: 20190424
  Transmission Date: 20190711
  Serious: No
  Sender: FDA-Public Use
  Company Number: US-SA-2019SA109787

PATIENT
  Sex: Female

DRUGS (4)
  1. ZANTAC 75 [Suspect]
     Active Substance: RANITIDINE HYDROCHLORIDE
     Dosage: 3 DF, UNK
     Route: 065
  2. XANAX [Suspect]
     Active Substance: ALPRAZOLAM
     Dosage: 2 DF, UNK
  3. DRAMAMINE [Suspect]
     Active Substance: DIMENHYDRINATE
     Dosage: 1 DF, UNK
  4. ADVIL [IBUPROFEN] [Suspect]
     Active Substance: IBUPROFEN
     Dosage: 4 DF, UNK

REACTIONS (1)
  - Drug ineffective [Unknown]
